FAERS Safety Report 21769437 (Version 1)
Quarter: 2022Q4

REPORT INFORMATION
  Report Type: Spontaneous
  Country: FR (occurrence: FR)
  Receive Date: 20221223
  Receipt Date: 20221223
  Transmission Date: 20230113
  Serious: Yes (Death)
  Sender: FDA-Public Use
  Company Number: FR-BAXTER-2022BAX026361

PATIENT
  Age: 64 Year
  Sex: Male

DRUGS (4)
  1. BORTEZOMIB [Suspect]
     Active Substance: BORTEZOMIB
     Indication: Product used for unknown indication
     Dosage: 2.8 MG/ DOSE, TREATMENT LINE NUMBER 1, DURATION: 8.1 MONTHS
     Route: 065
     Dates: end: 20210707
  2. MELPHALAN [Suspect]
     Active Substance: MELPHALAN
     Indication: Product used for unknown indication
     Dosage: 200 MG/ DOSE, TREATMENT LINE NUMBER 1, DURATION: 8.1 MONTHS
     Route: 065
     Dates: end: 20210707
  3. CYCLOPHOSPHAMIDE [Suspect]
     Active Substance: CYCLOPHOSPHAMIDE
     Indication: Product used for unknown indication
     Dosage: 650 MG/DOSE, TREATMENT LINE NUMBER 1, DURATION: 8.1 MONTHS
     Route: 065
     Dates: end: 20210707
  4. DEXAMETHASONE [Suspect]
     Active Substance: DEXAMETHASONE
     Indication: Product used for unknown indication
     Dosage: 20 MG/ DOSE, TREATMENT LINE NUMBER 1, DURATION: 8.1 MONTHS
     Route: 065
     Dates: end: 20210707

REACTIONS (1)
  - Disease progression [Fatal]
